FAERS Safety Report 9779671 (Version 8)
Quarter: 2015Q2

REPORT INFORMATION
  Report Type: Report from Study
  Country: CA (occurrence: CA)
  Receive Date: 20131223
  Receipt Date: 20150611
  Transmission Date: 20150821
  Serious: Yes (Hospitalization, Other)
  Sender: FDA-Public Use
  Company Number: PHHY2013CA112136

PATIENT
  Sex: Female

DRUGS (3)
  1. SANDOSTATIN LAR DEPOT [Suspect]
     Active Substance: OCTREOTIDE ACETATE
     Indication: NEUROENDOCRINE TUMOUR
     Dosage: 30 MG, QW4 (EVERY 4 WEEKS)
     Route: 030
     Dates: start: 20130807
  2. SANDOSTATIN LAR DEPOT [Suspect]
     Active Substance: OCTREOTIDE ACETATE
     Dosage: 30 MG EVERY 3 WEEKS
     Route: 030
  3. SANDOSTATIN [Suspect]
     Active Substance: OCTREOTIDE ACETATE
     Indication: NEUROENDOCRINE TUMOUR
     Dosage: 100 UG, TID (TO CONT. 2 WEEKS POST 1ST LAR)
     Route: 058
     Dates: start: 20130613, end: 201308

REACTIONS (4)
  - Blood pressure increased [Unknown]
  - Hepatic cancer [Unknown]
  - Ovarian cancer [Unknown]
  - Second primary malignancy [Unknown]
